FAERS Safety Report 7169632-4 (Version None)
Quarter: 2010Q4

REPORT INFORMATION
  Report Type: 
  Country: None (occurrence: None)
  Receive Date: 20101217
  Receipt Date: 20101207
  Transmission Date: 20110411
  Serious: Yes (Hospitalization)
  Sender: FDA-Public Use
  Company Number: US-PFIZER INC-2010171759

PATIENT
  Weight: 65 kg

DRUGS (1)
  1. SOLU-MEDROL [Suspect]

REACTIONS (2)
  - DYSPNOEA [None]
  - PRURITUS [None]
